FAERS Safety Report 8356926-X (Version None)
Quarter: 2012Q2

REPORT INFORMATION
  Report Type: 
  Country: None (occurrence: None)
  Receive Date: 20120514
  Receipt Date: 20120508
  Transmission Date: 20120825
  Serious: Yes (Life-Threatening)
  Sender: FDA-Public Use
  Company Number: JP-PFIZER INC-2012062676

PATIENT
  Age: 78 Year
  Sex: Female
  Weight: 35 kg

DRUGS (7)
  1. PREDNISOLONE [Concomitant]
     Indication: RHEUMATOID ARTHRITIS
     Dosage: 5 MG, 1X/DAY
     Route: 048
     Dates: start: 20060501
  2. PREDNISOLONE [Concomitant]
     Indication: RHEUMATOID ARTHRITIS
     Dosage: 3 MG, 1X/DAY
     Route: 048
     Dates: start: 20060501
  3. ZYVOX [Suspect]
     Indication: PNEUMONIA STAPHYLOCOCCAL
     Dosage: 600 MG, 2X/DAY
     Route: 041
     Dates: start: 20120228, end: 20120229
  4. VANCOMYCIN [Concomitant]
     Indication: PNEUMONIA STAPHYLOCOCCAL
     Dosage: 0.5 G, 2X/DAY
     Route: 041
     Dates: start: 20120203, end: 20120213
  5. PROGRAF [Concomitant]
     Indication: RHEUMATOID ARTHRITIS
     Dosage: 1.5 MG, 1X/DAY
     Route: 048
     Dates: start: 20060501
  6. LANSOPRAZOLE [Concomitant]
     Indication: GASTRIC DISORDER
     Dosage: 30 MG, 2X/DAY
     Route: 041
     Dates: start: 20111224
  7. TEICOPLANIN [Concomitant]
     Indication: PNEUMONIA STAPHYLOCOCCAL
     Dosage: 400 MG, 1X/DAY
     Route: 041
     Dates: start: 20120223, end: 20120226

REACTIONS (2)
  - HYPONATRAEMIA [None]
  - ALTERED STATE OF CONSCIOUSNESS [None]
